FAERS Safety Report 6826554-3 (Version None)
Quarter: 2010Q3

REPORT INFORMATION
  Report Type: 
  Country: None (occurrence: None)
  Receive Date: 20100709
  Receipt Date: 20100625
  Transmission Date: 20110219
  Serious: Yes (Other)
  Sender: FDA-Public Use
  Company Number: US-SHIRE-SPV1-2010-01039

PATIENT

DRUGS (3)
  1. VYVANSE [Suspect]
     Indication: ATTENTION DEFICIT/HYPERACTIVITY DISORDER
     Dosage: 20 - 70 MG CAPSULES, ONE DOSE
     Route: 048
     Dates: start: 20100527, end: 20100527
  2. VYVANSE [Suspect]
     Dosage: 70 MG, 1X/DAY:QD IN AM
     Dates: start: 20090701, end: 20100528
  3. LEXAPRO [Suspect]
     Indication: DEPRESSION
     Dosage: 20MG DAILY
     Dates: start: 20100527, end: 20100528

REACTIONS (3)
  - INSOMNIA [None]
  - INTENTIONAL OVERDOSE [None]
  - VOMITING [None]
